FAERS Safety Report 6395672-9 (Version None)
Quarter: 2009Q4

REPORT INFORMATION
  Report Type: 
  Country: None (occurrence: None)
  Receive Date: 20091009
  Receipt Date: 20091001
  Transmission Date: 20100525
  Serious: Yes (Hospitalization, Other)
  Sender: FDA-Public Use
  Company Number: PHHY2009BR40199

PATIENT
  Age: 70 Year
  Sex: Male
  Weight: 54.5 kg

DRUGS (7)
  1. GALVUS [Suspect]
     Indication: DIABETES MELLITUS
     Dosage: 2 TABLETS (50 MG) DAILY
     Route: 048
     Dates: start: 20090701
  2. DIOVAN [Suspect]
     Indication: HYPERTENSION
     Dosage: 1/2 TABLET (80 MG) DAILY
     Route: 048
  3. SUSTRATE [Concomitant]
  4. ALDACTONE [Concomitant]
  5. ICTUS [Concomitant]
  6. POSLIP [Concomitant]
  7. LANTUS [Concomitant]

REACTIONS (2)
  - CATHETERISATION CARDIAC [None]
  - MYOCARDIAL INFARCTION [None]
